FAERS Safety Report 4885552-X (Version None)
Quarter: 2006Q1

REPORT INFORMATION
  Report Type: 
  Country: None (occurrence: None)
  Receive Date: 20060119
  Receipt Date: 20060111
  Transmission Date: 20060701
  Serious: Yes (Life-Threatening)
  Sender: FDA-Public Use
  Company Number: AT-MERCK-0601AUT00002

PATIENT
  Age: 35 Year
  Sex: Female

DRUGS (7)
  1. CANCIDAS [Suspect]
     Indication: PNEUMONIA
     Route: 041
     Dates: start: 20060101
  2. CANCIDAS [Suspect]
     Indication: MYCOSIS FUNGOIDES
     Route: 041
     Dates: start: 20060101
  3. CLARITHROMYCIN [Concomitant]
     Route: 065
  4. VORICONAZOLE [Concomitant]
     Indication: PNEUMONIA
     Route: 065
     Dates: start: 20060101, end: 20060101
  5. VORICONAZOLE [Concomitant]
     Indication: MYCOSIS FUNGOIDES
     Route: 065
     Dates: start: 20060101, end: 20060101
  6. MEROPENEM [Concomitant]
     Route: 065
  7. [THERAPY UNSPECIFIED] [Concomitant]
     Route: 065

REACTIONS (3)
  - CARDIAC FIBRILLATION [None]
  - CONFUSIONAL STATE [None]
  - ELECTROCARDIOGRAM QT PROLONGED [None]
